FAERS Safety Report 4595244-2 (Version None)
Quarter: 2005Q1

REPORT INFORMATION
  Report Type: 
  Country: None (occurrence: None)
  Receive Date: 20050224
  Receipt Date: 20050209
  Transmission Date: 20050727
  Serious: Yes (Hospitalization)
  Sender: FDA-Public Use
  Company Number: 2005-00244

PATIENT
  Age: 79 Year
  Sex: Female
  Weight: 76.6 kg

DRUGS (11)
  1. VELCADE [Suspect]
     Indication: MULTIPLE MYELOMA
     Dosage: 1.00 MG/M2, IV BOLUS
     Route: 040
     Dates: start: 20040924, end: 20041124
  2. ASPIRIN [Concomitant]
  3. CARDIZEM [Concomitant]
  4. FERROUS SULFATE TAB [Concomitant]
  5. PREMARIN [Concomitant]
  6. DETROL [Concomitant]
  7. HYDRALAZINE (HYDRALAZINE) [Concomitant]
  8. COREG [Concomitant]
  9. ZOCOR [Concomitant]
  10. LASIX [Concomitant]
  11. POTASSIUM CHLORIDE [Concomitant]

REACTIONS (5)
  - ASTHENIA [None]
  - CARDIAC FAILURE CONGESTIVE [None]
  - DYSPNOEA [None]
  - HYPERTENSION [None]
  - RENAL FAILURE [None]
